FAERS Safety Report 8183440-7 (Version None)
Quarter: 2012Q1

REPORT INFORMATION
  Report Type: 
  Country: None (occurrence: None)
  Receive Date: 20120305
  Receipt Date: 20120227
  Transmission Date: 20120608
  Serious: Yes (Other)
  Sender: FDA-Public Use
  Company Number: US-PFIZER INC-2012040213

PATIENT
  Sex: Male

DRUGS (7)
  1. VIAGRA [Suspect]
  2. VIAGRA [Suspect]
     Indication: ERECTILE DYSFUNCTION
     Dosage: 100 MG, AS NEEDED
     Route: 048
     Dates: start: 20040101
  3. SOMA [Concomitant]
     Dosage: UNK
  4. VALSARTAN [Concomitant]
     Indication: HYPERTENSION
     Dosage: UNK
  5. XANAX [Concomitant]
     Dosage: UNK
  6. NEXIUM [Concomitant]
     Dosage: UNK
  7. TOPROL-XL [Concomitant]
     Dosage: UNK

REACTIONS (1)
  - CEREBROVASCULAR ACCIDENT [None]
